FAERS Safety Report 5463933-3 (Version None)
Quarter: 2007Q3

REPORT INFORMATION
  Report Type: 
  Country: None (occurrence: None)
  Receive Date: 20070921
  Receipt Date: 20070717
  Transmission Date: 20080115
  Serious: No
  Sender: FDA-Public Use
  Company Number: A0659678A

PATIENT
  Sex: Female

DRUGS (8)
  1. AVANDARYL [Suspect]
     Dosage: 2TAB PER DAY
     Route: 048
  2. COZAAR [Concomitant]
  3. ATENOLOL [Concomitant]
  4. FOLIC ACID [Concomitant]
  5. NORVASC [Concomitant]
  6. HYDROCHLOROTHIAZIDE [Concomitant]
  7. POTASSIUM CHLORIDE [Concomitant]
  8. SYNTHROID [Concomitant]

REACTIONS (4)
  - DRY EYE [None]
  - DYSPNOEA [None]
  - PALPITATIONS [None]
  - RASH [None]
